FAERS Safety Report 5081814-4 (Version None)
Quarter: 2006Q3

REPORT INFORMATION
  Report Type: 
  Country: None (occurrence: None)
  Receive Date: 20060816
  Receipt Date: 20060811
  Transmission Date: 20061208
  Serious: Yes (Congenital Anomaly)
  Sender: FDA-Public Use
  Company Number: JP-JPN-A200603156

PATIENT
  Age: 10 Day
  Sex: Female
  Weight: 3.07 kg

DRUGS (1)
  1. PAXIL [Suspect]
     Indication: ANXIETY DISORDER
     Dosage: 30MG PER DAY
     Dates: start: 20050426

REACTIONS (5)
  - ABDOMINAL DISTENSION [None]
  - CONGENITAL MEGACOLON [None]
  - DRUG EXPOSURE DURING PREGNANCY [None]
  - JAUNDICE NEONATAL [None]
  - RESPIRATORY DISORDER [None]
